FAERS Safety Report 8540680-2 (Version None)
Quarter: 2012Q3

REPORT INFORMATION
  Report Type: 
  Country: None (occurrence: None)
  Receive Date: 20120726
  Receipt Date: 20120720
  Transmission Date: 20120928
  Serious: Yes (Other)
  Sender: FDA-Public Use
  Company Number: BR-GILEAD-2010-0030926

PATIENT
  Sex: Male

DRUGS (12)
  1. LAMIVUDINE [Suspect]
     Indication: HIV INFECTION
     Dosage: 300 MG, QD
     Dates: start: 20100630
  2. AZITHROMYCIN [Concomitant]
     Indication: PROPHYLAXIS
     Dosage: UNK
     Dates: start: 20100611, end: 20100726
  3. RALTEGRAVIR [Suspect]
     Indication: HIV INFECTION
     Dosage: 1600 MG, QD
     Dates: start: 20100522
  4. PYRIDOXINE HCL [Concomitant]
     Indication: PROPHYLAXIS
     Dosage: UNK
     Dates: start: 20100614
  5. ACYCLOVIR [Suspect]
     Indication: ADVERSE DRUG REACTION
     Dosage: UNK
     Dates: start: 20100720, end: 20100728
  6. PYRAZINAMIDE [Concomitant]
     Indication: TUBERCULOSIS
     Dosage: UNK
     Dates: start: 20100522, end: 20100726
  7. CIPROFLAXACIN [Concomitant]
     Indication: PROSTATISM
     Dosage: UNK
     Dates: start: 20100715
  8. LEUCOVORIN CALCIUM [Concomitant]
     Indication: ANAEMIA
     Dosage: UNK
     Dates: start: 20100607
  9. COTRIM [Suspect]
     Indication: PROPHYLAXIS
     Dosage: UNK
     Dates: start: 20100520, end: 20100726
  10. RIFAMPIN [Concomitant]
     Indication: TUBERCULOSIS
     Dosage: UNK
     Dates: start: 20100522
  11. TENOFOVIR DISOPROXIL FUMARATE [Suspect]
     Indication: HIV INFECTION
     Dosage: 300 MG, QD
     Route: 048
     Dates: start: 20100522
  12. ISONIAZID [Concomitant]
     Indication: TUBERCULOSIS
     Dosage: UNK
     Dates: start: 20100522

REACTIONS (1)
  - LEUKOPENIA [None]
